FAERS Safety Report 5962430-6 (Version None)
Quarter: 2008Q4

REPORT INFORMATION
  Report Type: 
  Country: None (occurrence: None)
  Receive Date: 20081121
  Receipt Date: 20081114
  Transmission Date: 20090506
  Serious: Yes (Other)
  Sender: FDA-Public Use
  Company Number: PHHY2008FR28620

PATIENT
  Age: 65 Year
  Sex: Male

DRUGS (8)
  1. STALEVO 100 [Suspect]
     Indication: PARKINSON'S DISEASE
     Dosage: 600/450/112.5 MG DAILY
     Route: 048
     Dates: start: 20080519
  2. COMTAN [Suspect]
     Dosage: 2 DF DAILY
     Route: 048
  3. SINEMET [Suspect]
     Dosage: 500/150 MG DAILY
  4. REQUIP [Suspect]
     Dosage: 8 MG, BID
  5. TRIVASTAL [Suspect]
     Dosage: 3 DF DAILY
  6. MANTADIX [Concomitant]
     Dosage: 3 DF DAILY
  7. ESCITALOPRAM [Concomitant]
  8. RIVOTRIL [Concomitant]

REACTIONS (2)
  - DYSKINESIA [None]
  - PATHOLOGICAL GAMBLING [None]
